FAERS Safety Report 13068804 (Version 1)
Quarter: 2016Q4

REPORT INFORMATION
  Report Type: Report from Study
  Country: MX (occurrence: MX)
  Receive Date: 20161228
  Receipt Date: 20161228
  Transmission Date: 20170207
  Serious: Yes (Other)
  Sender: FDA-Public Use
  Company Number: PHHY2016MX150831

PATIENT
  Age: 13 Year
  Sex: Male

DRUGS (1)
  1. RITALINE [Suspect]
     Active Substance: METHYLPHENIDATE HYDROCHLORIDE
     Indication: ATTENTION DEFICIT/HYPERACTIVITY DISORDER
     Dosage: 1 DF
     Route: 065
     Dates: start: 2013, end: 2014

REACTIONS (7)
  - Dyschezia [Unknown]
  - Daydreaming [Unknown]
  - Platelet count decreased [Unknown]
  - Abdominal discomfort [Not Recovered/Not Resolved]
  - Vomiting [Not Recovered/Not Resolved]
  - Paralysis [Unknown]
  - Eating disorder [Unknown]

NARRATIVE: CASE EVENT DATE: 20161223
